FAERS Safety Report 18941895 (Version 1)
Quarter: 2021Q1

REPORT INFORMATION
  Report Type: Spontaneous
  Country: FR (occurrence: FR)
  Receive Date: 20210225
  Receipt Date: 20210225
  Transmission Date: 20210420
  Serious: Yes (Hospitalization)
  Sender: FDA-Public Use
  Company Number: FR-TEVA-2021-FR-1882731

PATIENT
  Age: 95 Year
  Sex: Female
  Weight: 49.6 kg

DRUGS (14)
  1. MOVICOL [Concomitant]
     Active Substance: POLYETHYLENE GLYCOL 3350\POTASSIUM CHLORIDE\SODIUM BICARBONATE\SODIUM CHLORIDE
  2. SERESTA [Concomitant]
     Active Substance: OXAZEPAM
  3. AZITHROMYCINE [Suspect]
     Active Substance: AZITHROMYCIN
     Indication: CORONAVIRUS INFECTION
     Dosage: 500MG
     Route: 048
     Dates: start: 20201212, end: 20201216
  4. COUMADINE 2 MG, COMPRIME SECABLE [Interacting]
     Active Substance: WARFARIN SODIUM
     Indication: ANTICOAGULANT THERAPY
     Dosage: 1DF
     Route: 048
     Dates: start: 20201214, end: 20201217
  5. LERCANIDIPINE (CHLORHYDRATE DE) [Concomitant]
     Active Substance: LERCANIDIPINE HYDROCHLORIDE
  6. BISOCE [Concomitant]
     Active Substance: BISOPROLOL
  7. CEFTRIAXONE BASE [Interacting]
     Active Substance: CEFTRIAXONE
     Indication: CORONAVIRUS INFECTION
     Dosage: 1GM
     Route: 042
     Dates: start: 20201212, end: 20201218
  8. SALBUTAMOL [Concomitant]
     Active Substance: ALBUTEROL
  9. PANTOPRAZOLE [Concomitant]
     Active Substance: PANTOPRAZOLE
  10. DOLIPRANE [Concomitant]
     Active Substance: ACETAMINOPHEN
  11. FUROSEMIDE. [Concomitant]
     Active Substance: FUROSEMIDE
  12. CALCIDOSE [Concomitant]
  13. SOLUPRED 20 MG, COMPRIME ORODISPERSIBLE [Interacting]
     Active Substance: PREDNISOLONE SODIUM METAZOATE
     Indication: CORONAVIRUS INFECTION
     Dosage: 2DF
     Dates: start: 20201212, end: 20201216
  14. DIFFU K [Concomitant]
     Active Substance: POTASSIUM CHLORIDE

REACTIONS (3)
  - Overdose [Recovered/Resolved]
  - International normalised ratio increased [Recovered/Resolved]
  - Drug interaction [Unknown]

NARRATIVE: CASE EVENT DATE: 20201217
